FAERS Safety Report 23540094 (Version 1)
Quarter: 2024Q1

REPORT INFORMATION
  Report Type: Spontaneous
  Country: US (occurrence: US)
  Receive Date: 20240219
  Receipt Date: 20240219
  Transmission Date: 20240409
  Serious: Yes (Other)
  Sender: FDA-Public Use
  Company Number: US-BAYER-2024A022460

PATIENT
  Age: 37 Year
  Sex: Male

DRUGS (1)
  1. KOVALTRY [Suspect]
     Active Substance: ANTIHEMOPHILIC FACTOR, HUMAN RECOMBINANT
     Dosage: 4000 IU (+/- 10%) EVERY 12 TO 24

REACTIONS (4)
  - Haemorrhage [None]
  - Haemorrhage [None]
  - Arthralgia [None]
  - Hangnail [None]

NARRATIVE: CASE EVENT DATE: 20231223
